FAERS Safety Report 14929759 (Version 2)
Quarter: 2018Q3

REPORT INFORMATION
  Report Type: Spontaneous
  Country: US (occurrence: US)
  Receive Date: 20180523
  Receipt Date: 20180817
  Transmission Date: 20181010
  Serious: Yes (Other)
  Sender: FDA-Public Use
  Company Number: US-ASTRAZENECA-2018SE63904

PATIENT
  Age: 21749 Day
  Sex: Male
  Weight: 160.1 kg

DRUGS (39)
  1. NEXIUM [Suspect]
     Active Substance: ESOMEPRAZOLE MAGNESIUM
     Indication: GASTROOESOPHAGEAL REFLUX DISEASE
     Dosage: GENERIC
     Route: 065
     Dates: start: 2016
  2. ERGOCALCIFEROL. [Concomitant]
     Active Substance: ERGOCALCIFEROL
     Dosage: 5000 UNITS WEEKLY
     Route: 048
     Dates: start: 20141216
  3. CEFUROXIME AXETIL. [Concomitant]
     Active Substance: CEFUROXIME AXETIL
     Route: 048
     Dates: start: 20120109
  4. IBUPROFEN. [Concomitant]
     Active Substance: IBUPROFEN
     Dosage: 800 MG
     Dates: start: 20060318
  5. CEFADROXIL. [Concomitant]
     Active Substance: CEFADROXIL
     Dosage: 500 MG
     Dates: start: 20121012
  6. HUMALOG [Concomitant]
     Active Substance: INSULIN LISPRO
     Dosage: 100 UNITS/ML
     Dates: start: 20131116
  7. PRILOSEC [Suspect]
     Active Substance: OMEPRAZOLE MAGNESIUM
     Indication: GASTROOESOPHAGEAL REFLUX DISEASE
     Dosage: 20.0MG UNKNOWN
     Route: 048
     Dates: start: 2005, end: 2014
  8. ATORVASTATIN [Concomitant]
     Active Substance: ATORVASTATIN
     Indication: CARDIAC DISORDER
  9. FUROSEMIDE. [Concomitant]
     Active Substance: FUROSEMIDE
     Indication: TYPE 2 DIABETES MELLITUS
     Dosage: 40MG
  10. CARVEDILOL. [Concomitant]
     Active Substance: CARVEDILOL
     Route: 048
     Dates: start: 20140819
  11. BENAZEPRIL HYDROCHLORIDE. [Concomitant]
     Active Substance: BENAZEPRIL HYDROCHLORIDE
     Route: 048
     Dates: start: 20141216
  12. NEXIUM [Suspect]
     Active Substance: ESOMEPRAZOLE MAGNESIUM
     Indication: GASTROOESOPHAGEAL REFLUX DISEASE
     Route: 048
     Dates: start: 20060927
  13. SULINDAC. [Concomitant]
     Active Substance: SULINDAC
     Route: 048
     Dates: start: 20120702
  14. ACETAMINOPHEN?CODENINE [Concomitant]
     Dosage: 300?30 MG, 0NE?TWO TABS EVERY 4?6 HOURS AS NEEDED FOR PAIN
     Route: 048
     Dates: start: 20060318
  15. NEXIUM [Suspect]
     Active Substance: ESOMEPRAZOLE MAGNESIUM
     Indication: GASTROOESOPHAGEAL REFLUX DISEASE
     Route: 048
     Dates: start: 2005, end: 2016
  16. INSULIN [Concomitant]
     Active Substance: INSULIN NOS
     Dosage: 4 INJECTIONS DAILY
     Dates: start: 20130305
  17. ALDACTONE [Concomitant]
     Active Substance: SPIRONOLACTONE
     Dates: start: 20131008
  18. NEXIUM [Suspect]
     Active Substance: ESOMEPRAZOLE MAGNESIUM
     Indication: GASTROOESOPHAGEAL REFLUX DISEASE
     Dosage: PRESENT, 1 DAILY
     Route: 048
  19. TUMS [Concomitant]
     Active Substance: CALCIUM CARBONATE
     Dosage: AS NEEDED
     Dates: start: 2004, end: 2005
  20. SULINDAC. [Concomitant]
     Active Substance: SULINDAC
     Dosage: 150 MG
     Dates: start: 20060810
  21. BUPIVACAINE. [Concomitant]
     Active Substance: BUPIVACAINE
     Dates: start: 20131113
  22. LEVITRA [Concomitant]
     Active Substance: VARDENAFIL HYDROCHLORIDE TRIHYDRATE
     Dosage: 20 MG
     Dates: start: 20080827
  23. NITROSTAT [Concomitant]
     Active Substance: NITROGLYCERIN
     Dosage: 0.4 MG
     Dates: start: 20121129
  24. GLIMEPIRIDE. [Concomitant]
     Active Substance: GLIMEPIRIDE
     Route: 048
     Dates: start: 20120716
  25. INSULIN [Concomitant]
     Active Substance: INSULIN NOS
     Dosage: INSULIN GLARGINE (LANTUS SOLOSTAR) 100 UNIT/ML
     Dates: start: 20141216
  26. LASIX [Concomitant]
     Active Substance: FUROSEMIDE
     Dates: start: 20130716
  27. ORTHOVISC [Concomitant]
     Active Substance: HYALURONIC ACID
     Route: 065
     Dates: start: 20131113
  28. NIFEDIAC CC [Concomitant]
     Active Substance: NIFEDIPINE
     Dosage: 60 MG
     Dates: start: 20060810
  29. LANTUS SOLOSTAR [Concomitant]
     Active Substance: INSULIN GLARGINE
     Dosage: 100 UNITS/ML
     Dates: start: 20130212
  30. ALLOPURINOL. [Concomitant]
     Active Substance: ALLOPURINOL
     Indication: RENAL DISORDER
     Route: 048
     Dates: start: 20060810
  31. AMLODIPINE [Concomitant]
     Active Substance: AMLODIPINE BESYLATE
  32. BENAZEPRIL [Concomitant]
     Active Substance: BENAZEPRIL HYDROCHLORIDE
     Indication: BLOOD PRESSURE MEASUREMENT
     Dosage: 40 MG
     Dates: start: 20150505
  33. BENAZEPRIL [Concomitant]
     Active Substance: BENAZEPRIL HYDROCHLORIDE
     Indication: BLOOD PRESSURE MEASUREMENT
     Dosage: 5 MG
     Dates: start: 20060927
  34. PEPCID AC [Concomitant]
     Active Substance: FAMOTIDINE
     Dosage: AS NEEDED
     Dates: start: 2004, end: 2015
  35. ROLAIDS [Concomitant]
     Active Substance: CALCIUM CARBONATE\MAGNESIUM HYDROXIDE
     Dosage: AS NEEDED
     Dates: start: 2002, end: 2004
  36. BENICAR HCT [Concomitant]
     Active Substance: HYDROCHLOROTHIAZIDE\OLMESARTAN MEDOXOMIL
     Dosage: 20/25 MG DAILY
     Route: 048
  37. METFORMIN [Concomitant]
     Active Substance: METFORMIN HYDROCHLORIDE
     Route: 048
     Dates: start: 20090327
  38. BUPROPION HYDROCHLORIDE. [Concomitant]
     Active Substance: BUPROPION HYDROCHLORIDE
     Dosage: 150 MG 24HR
     Route: 048
     Dates: start: 20141216
  39. AMOXICILLIN. [Concomitant]
     Active Substance: AMOXICILLIN
     Dosage: 500 MG
     Dates: start: 20140318

REACTIONS (2)
  - Renal failure [Unknown]
  - Chronic kidney disease [Not Recovered/Not Resolved]

NARRATIVE: CASE EVENT DATE: 20121114
